FAERS Safety Report 7083578-1 (Version None)
Quarter: 2010Q4

REPORT INFORMATION
  Report Type: 
  Country: None (occurrence: None)
  Receive Date: 20101027
  Receipt Date: 20101018
  Transmission Date: 20110411
  Serious: Yes (Hospitalization, Other)
  Sender: FDA-Public Use
  Company Number: 007581

PATIENT
  Sex: Female

DRUGS (5)
  1. KEPPRA [Suspect]
     Indication: EPILEPSY
     Dosage: (1000 MG) (1250 MG, 500-250-500), (500-500-500), (2000 MG, 750-500-750)
     Dates: start: 20090505
  2. VALPROATE SODIUM [Concomitant]
  3. FOLIC ACID [Concomitant]
  4. TAVOR /00273201/ [Concomitant]
  5. ERGENYL CHRONO [Concomitant]

REACTIONS (5)
  - CAESAREAN SECTION [None]
  - CONVULSION [None]
  - DRUG EXPOSURE DURING PREGNANCY [None]
  - FOETAL DISTRESS SYNDROME [None]
  - GRAND MAL CONVULSION [None]
